FAERS Safety Report 17575761 (Version 1)
Quarter: 2020Q1

REPORT INFORMATION
  Report Type: Spontaneous
  Country: US (occurrence: US)
  Receive Date: 20200323
  Receipt Date: 20200323
  Transmission Date: 20200409
  Serious: Yes (Other)
  Sender: FDA-Public Use
  Company Number: None

PATIENT
  Age: 72 Year
  Sex: Male

DRUGS (10)
  1. MOTEGRITY [Suspect]
     Active Substance: PRUCALOPRIDE SUCCINATE
     Indication: CONSTIPATION
     Route: 048
     Dates: start: 20200213
  2. PSYLLIUM [Concomitant]
     Active Substance: PLANTAGO SEED
  3. LEVOTHYROXINE 112 MCG [Concomitant]
     Active Substance: LEVOTHYROXINE
  4. ATORVASTATIN 20 MG [Concomitant]
     Active Substance: ATORVASTATIN
  5. ASPIRIN 81 MG [Concomitant]
     Active Substance: ASPIRIN
  6. AMLODIPINE [Concomitant]
     Active Substance: AMLODIPINE BESYLATE
  7. OMEGA-3 1,290 MG [Concomitant]
  8. OMEPRAZOLE 40 MG [Concomitant]
     Active Substance: OMEPRAZOLE
  9. TAMSULOSIN 0.4 MG [Concomitant]
     Active Substance: TAMSULOSIN
  10. BUSPIRONE 15 MG [Concomitant]
     Active Substance: BUSPIRONE HYDROCHLORIDE

REACTIONS (3)
  - Headache [None]
  - Bone pain [None]
  - Loss of personal independence in daily activities [None]

NARRATIVE: CASE EVENT DATE: 20200323
